FAERS Safety Report 13591583 (Version 1)
Quarter: 2017Q2

REPORT INFORMATION
  Report Type: Spontaneous
  Country: US (occurrence: US)
  Receive Date: 20170530
  Receipt Date: 20170530
  Transmission Date: 20170830
  Serious: Yes (Disabling)
  Sender: FDA-Public Use
  Company Number: None

PATIENT
  Age: 57 Year
  Sex: Female
  Weight: 51.75 kg

DRUGS (6)
  1. SEROQUEL [Concomitant]
     Active Substance: QUETIAPINE FUMARATE
  2. LITHIUM. [Concomitant]
     Active Substance: LITHIUM
  3. XANAX [Concomitant]
     Active Substance: ALPRAZOLAM
  4. BENZTROPINE 1MG [Suspect]
     Active Substance: BENZTROPINE
     Indication: BRUXISM
     Dosage: ?          QUANTITY:30 TABLET(S);?
     Route: 048
  5. ADDERALL [Concomitant]
     Active Substance: AMPHETAMINE ASPARTATE\AMPHETAMINE SULFATE\DEXTROAMPHETAMINE SACCHARATE\DEXTROAMPHETAMINE SULFATE
  6. LUNESTA [Concomitant]
     Active Substance: ESZOPICLONE

REACTIONS (2)
  - Psychotic disorder [None]
  - Toxicity to various agents [None]

NARRATIVE: CASE EVENT DATE: 20161224
